FAERS Safety Report 8192802-3 (Version None)
Quarter: 2012Q1

REPORT INFORMATION
  Report Type: 
  Country: None (occurrence: None)
  Receive Date: 20120308
  Receipt Date: 20120229
  Transmission Date: 20120608
  Serious: No
  Sender: FDA-Public Use
  Company Number: US-PFIZER INC-2012056876

PATIENT
  Sex: Female
  Weight: 53.515 kg

DRUGS (1)
  1. XALATAN [Suspect]
     Dosage: UNK

REACTIONS (4)
  - DIZZINESS [None]
  - OCULAR HYPERAEMIA [None]
  - HYPERSENSITIVITY [None]
  - COUGH [None]
